FAERS Safety Report 12234753 (Version 5)
Quarter: 2016Q3

REPORT INFORMATION
  Report Type: Spontaneous
  Country: JP (occurrence: JP)
  Receive Date: 20160404
  Receipt Date: 20160720
  Transmission Date: 20161109
  Serious: Yes (Death)
  Sender: FDA-Public Use
  Company Number: JP-JNJFOC-20160400001

PATIENT
  Age: 46 Year
  Sex: Female
  Weight: 53 kg

DRUGS (23)
  1. XEPLION [Suspect]
     Active Substance: PALIPERIDONE PALMITATE
     Indication: SCHIZOPHRENIA
     Dosage: ( RIGHT GLUTEUS MUSCLE )
     Route: 030
     Dates: start: 20140805, end: 20140805
  2. XEPLION [Suspect]
     Active Substance: PALIPERIDONE PALMITATE
     Indication: SCHIZOPHRENIA
     Dosage: (RIGHT GLUTEUS MUSCLE)
     Route: 030
     Dates: start: 20150605, end: 20150605
  3. XEPLION [Suspect]
     Active Substance: PALIPERIDONE PALMITATE
     Indication: SCHIZOPHRENIA
     Dosage: (LEFT GLUTEUS MUSCLE)
     Route: 030
     Dates: start: 20150703, end: 20150703
  4. ZYPREXA [Concomitant]
     Active Substance: OLANZAPINE
     Indication: SCHIZOPHRENIA
     Route: 048
     Dates: end: 20140510
  5. XEPLION [Suspect]
     Active Substance: PALIPERIDONE PALMITATE
     Indication: SCHIZOPHRENIA
     Dosage: ( LEFT GLUTEUS MUSCLE )
     Route: 030
     Dates: start: 20140905, end: 20140905
  6. XEPLION [Suspect]
     Active Substance: PALIPERIDONE PALMITATE
     Indication: SCHIZOPHRENIA
     Dosage: ( LEFT GLUTEUS MUSCLE )
     Route: 030
     Dates: start: 20141104, end: 20141104
  7. XEPLION [Suspect]
     Active Substance: PALIPERIDONE PALMITATE
     Indication: SCHIZOPHRENIA
     Dosage: ( RIGHT GLUTEUS MUSCLE )
     Route: 030
     Dates: start: 20150406, end: 20150406
  8. XEPLION [Suspect]
     Active Substance: PALIPERIDONE PALMITATE
     Indication: SCHIZOPHRENIA
     Dosage: (LEFT GLUTEUS MUSCLE)
     Route: 030
     Dates: start: 20150903, end: 20150903
  9. XEPLION [Suspect]
     Active Substance: PALIPERIDONE PALMITATE
     Indication: SCHIZOPHRENIA
     Dosage: ( LEFT GLUTEUS MUSCLE )
     Route: 030
     Dates: start: 20140510, end: 20140510
  10. UNDEPRE [Concomitant]
     Active Substance: TRAZODONE HYDROCHLORIDE
     Indication: SCHIZOPHRENIA
     Route: 048
     Dates: end: 20141127
  11. XEPLION [Suspect]
     Active Substance: PALIPERIDONE PALMITATE
     Indication: SCHIZOPHRENIA
     Dosage: (RIGHT DELTOID MUSCLE )
     Route: 030
     Dates: start: 20140402, end: 20140402
  12. XEPLION [Suspect]
     Active Substance: PALIPERIDONE PALMITATE
     Indication: SCHIZOPHRENIA
     Dosage: ( LEFT GLUTEUS MUSCLE )
     Route: 030
     Dates: start: 20140708, end: 20140708
  13. XEPLION [Suspect]
     Active Substance: PALIPERIDONE PALMITATE
     Indication: SCHIZOPHRENIA
     Dosage: (RIGHT GLUTEUS MUSCLE)
     Route: 030
     Dates: start: 20150803, end: 20150803
  14. XEPLION [Suspect]
     Active Substance: PALIPERIDONE PALMITATE
     Indication: SCHIZOPHRENIA
     Dosage: ( LEFT DELTOID MUSCLE )
     Route: 030
     Dates: start: 20140409, end: 20140409
  15. XEPLION [Suspect]
     Active Substance: PALIPERIDONE PALMITATE
     Indication: SCHIZOPHRENIA
     Dosage: ( LEFT GLUTEUS MUSCLE )
     Route: 030
     Dates: start: 20150305, end: 20150305
  16. XEPLION [Suspect]
     Active Substance: PALIPERIDONE PALMITATE
     Indication: SCHIZOPHRENIA
     Dosage: (LEFT GLUTEUS MUSCLE)
     Route: 030
     Dates: start: 20150504, end: 20150504
  17. XEPLION [Suspect]
     Active Substance: PALIPERIDONE PALMITATE
     Indication: SCHIZOPHRENIA
     Route: 030
     Dates: end: 20151002
  18. XEPLION [Suspect]
     Active Substance: PALIPERIDONE PALMITATE
     Indication: SCHIZOPHRENIA
     Dosage: ( RIGHT GLUTEUS MUSCLE )
     Route: 030
     Dates: start: 20141204, end: 20141204
  19. XEPLION [Suspect]
     Active Substance: PALIPERIDONE PALMITATE
     Indication: SCHIZOPHRENIA
     Dosage: ( RIGHT GLUTEUS MUSCLE )
     Route: 030
     Dates: start: 20150205, end: 20150205
  20. XEPLION [Suspect]
     Active Substance: PALIPERIDONE PALMITATE
     Indication: SCHIZOPHRENIA
     Dosage: ( RIGHT GLUTEUS MUSCLE )
     Route: 030
     Dates: start: 20140610, end: 20140610
  21. XEPLION [Suspect]
     Active Substance: PALIPERIDONE PALMITATE
     Indication: SCHIZOPHRENIA
     Dosage: ( RIGHT GLUTEUS MUSCLE )
     Route: 030
     Dates: start: 20141003, end: 20141003
  22. XEPLION [Suspect]
     Active Substance: PALIPERIDONE PALMITATE
     Indication: SCHIZOPHRENIA
     Dosage: ( LEFT GLUTEUS MUSCLE )
     Route: 030
     Dates: start: 20150105, end: 20150105
  23. QUETIAPINE FUMARATE. [Concomitant]
     Active Substance: QUETIAPINE FUMARATE
     Indication: SCHIZOPHRENIA
     Route: 048

REACTIONS (1)
  - Completed suicide [Fatal]

NARRATIVE: CASE EVENT DATE: 20160209
